FAERS Safety Report 5860309-1 (Version None)
Quarter: 2008Q3

REPORT INFORMATION
  Report Type: 
  Country: None (occurrence: None)
  Receive Date: 20080827
  Receipt Date: 20080122
  Transmission Date: 20090109
  Serious: No
  Sender: FDA-Public Use
  Company Number: US-ABBOTT-07P-163-0415035-00

PATIENT
  Sex: Female

DRUGS (2)
  1. COATED PDS [Suspect]
     Indication: DRUG USE FOR UNKNOWN INDICATION
     Route: 048
     Dates: start: 20070823
  2. COATED PDS [Suspect]
     Dosage: WHITE
     Route: 048
     Dates: start: 20061221, end: 20070822

REACTIONS (2)
  - HYPOAESTHESIA [None]
  - MALAISE [None]
